FAERS Safety Report 8724412 (Version 4)
Quarter: 2013Q3

REPORT INFORMATION
  Report Type: Spontaneous
  Country: US (occurrence: US)
  Receive Date: 20120815
  Receipt Date: 20130906
  Transmission Date: 20140515
  Serious: No
  Sender: FDA-Public Use
  Company Number: US-PFIZER INC-2012198241

PATIENT
  Age: 54 Year
  Sex: Female

DRUGS (6)
  1. LYRICA [Suspect]
     Indication: FIBROMYALGIA
     Dosage: 50 MG, 3X/DAY
     Route: 048
     Dates: start: 20120728, end: 201209
  2. LYRICA [Interacting]
     Indication: PAIN
  3. HYDROCODONE [Concomitant]
     Dosage: UNK
  4. ALPRAZOLAM [Concomitant]
     Dosage: UNK
  5. PROZAC [Concomitant]
     Dosage: UNK
  6. VIVELLE [Concomitant]
     Dosage: UNK

REACTIONS (4)
  - Muscle twitching [Unknown]
  - Drug ineffective [Unknown]
  - Potentiating drug interaction [Unknown]
  - Pain [Unknown]
